FAERS Safety Report 5008101-4 (Version None)
Quarter: 2006Q2

REPORT INFORMATION
  Report Type: 
  Country: None (occurrence: None)
  Receive Date: 20060405
  Receipt Date: 20050516
  Transmission Date: 20061013
  Serious: No
  Sender: FDA-Public Use
  Company Number: APP200500265

PATIENT
  Age: 62 Year
  Sex: Male
  Weight: 74 kg

DRUGS (2)
  1. HEPARIN SODIUM INJECTION [Suspect]
     Indication: HAEMODIALYSIS
     Dosage: SEE IMAGE
     Route: 042
     Dates: start: 20050423, end: 20050423
  2. HEPARIN SODIUM INJECTION [Suspect]
     Indication: HAEMODIALYSIS
     Dosage: SEE IMAGE
     Route: 042
     Dates: start: 20030401

REACTIONS (2)
  - HAEMORRHAGE [None]
  - MEDICATION ERROR [None]
